FAERS Safety Report 6604950-7 (Version None)
Quarter: 2010Q1

REPORT INFORMATION
  Report Type: 
  Country: None (occurrence: None)
  Receive Date: 20100226
  Receipt Date: 20100224
  Transmission Date: 20100710
  Serious: Yes (Hospitalization)
  Sender: FDA-Public Use
  Company Number: AT-CEPHALON-2010000670

PATIENT
  Age: 79 Year
  Sex: Female
  Weight: 58 kg

DRUGS (8)
  1. EFFENTORA [Suspect]
     Indication: CANCER PAIN
     Route: 002
     Dates: start: 20100106
  2. CO-DIOVAN [Concomitant]
     Dates: start: 20080101
  3. DURAGESIC-100 [Concomitant]
  4. MARCOUMAT [Concomitant]
  5. SELOKEN [Concomitant]
     Dates: start: 20080101
  6. FLUOXETINE [Concomitant]
     Dates: start: 20090901
  7. EUTHYROX [Concomitant]
     Dates: start: 20080101
  8. GABAPENTIN [Concomitant]

REACTIONS (1)
  - HYPERTENSIVE CRISIS [None]
